FAERS Safety Report 19100435 (Version 3)
Quarter: 2021Q3

REPORT INFORMATION
  Report Type: Spontaneous
  Country: IT (occurrence: IT)
  Receive Date: 20210407
  Receipt Date: 20210729
  Transmission Date: 20211014
  Serious: Yes (Hospitalization, Other)
  Sender: FDA-Public Use
  Company Number: IT-AUROBINDO-AUR-APL-2021-013897

PATIENT
  Age: 68 Year
  Sex: Male

DRUGS (36)
  1. POTASSIUM CANRENOATE [Suspect]
     Active Substance: CANRENOATE POTASSIUM
     Dosage: 25 MILLIGRAM
     Route: 065
     Dates: start: 202001
  2. METFORMIN [Concomitant]
     Active Substance: METFORMIN HYDROCHLORIDE
     Indication: DIABETES MELLITUS MANAGEMENT
     Dosage: 1500 MILLIGRAM
     Route: 065
     Dates: start: 201704, end: 201908
  3. LINAGLIPTIN [Concomitant]
     Active Substance: LINAGLIPTIN
     Indication: DIABETES MELLITUS
     Dosage: 5 MILLIGRAM
     Route: 065
     Dates: start: 201908
  4. FUROSEMIDE TABLETS [Suspect]
     Active Substance: FUROSEMIDE
     Dosage: 25 MILLIGRAM
     Route: 065
     Dates: start: 201909
  5. FUROSEMIDE TABLETS [Suspect]
     Active Substance: FUROSEMIDE
     Dosage: 25 MILLIGRAM
     Route: 065
     Dates: start: 202001
  6. SACUBITRIL;VALSARTAN [Suspect]
     Active Substance: SACUBITRIL\VALSARTAN
     Indication: CARDIAC FAILURE
     Dosage: 1 DOSAGE FORM, TWO TIMES A DAY (LOW DOSE)
     Route: 065
     Dates: end: 201905
  7. EMPAGLIFLOZIN [Suspect]
     Active Substance: EMPAGLIFLOZIN
     Indication: DIABETES MELLITUS MANAGEMENT
     Dosage: 10 MILLIGRAM
     Route: 065
     Dates: start: 201905, end: 201908
  8. METFORMIN [Concomitant]
     Active Substance: METFORMIN HYDROCHLORIDE
     Dosage: 1500 MILLIGRAM
     Route: 065
     Dates: start: 201905
  9. BISOPROLOL [Concomitant]
     Active Substance: BISOPROLOL
     Dosage: 7.5 MILLIGRAM
     Route: 065
     Dates: start: 201905
  10. LINAGLIPTIN [Concomitant]
     Active Substance: LINAGLIPTIN
     Dosage: 5 MILLIGRAM
     Route: 065
     Dates: start: 201909
  11. LINAGLIPTIN [Concomitant]
     Active Substance: LINAGLIPTIN
     Dosage: 5 MILLIGRAM
     Route: 065
     Dates: start: 201901
  12. FUROSEMIDE TABLETS [Suspect]
     Active Substance: FUROSEMIDE
     Indication: DIABETES MELLITUS
     Dosage: 50 MILLIGRAM, ONCE A DAY
     Route: 065
     Dates: start: 201905, end: 2019
  13. POTASSIUM CANRENOATE [Suspect]
     Active Substance: CANRENOATE POTASSIUM
     Dosage: 50 MILLIGRAM
     Route: 065
     Dates: start: 201905
  14. METFORMIN [Concomitant]
     Active Substance: METFORMIN HYDROCHLORIDE
     Dosage: 1000 MILLIGRAM
     Route: 065
     Dates: start: 201909
  15. FUROSEMIDE TABLETS [Suspect]
     Active Substance: FUROSEMIDE
     Indication: CARDIAC FAILURE
     Dosage: 100 MILLIGRAM, ONCE A DAY
     Route: 065
     Dates: start: 201704, end: 201905
  16. EMPAGLIFLOZIN [Suspect]
     Active Substance: EMPAGLIFLOZIN
     Indication: TYPE 2 DIABETES MELLITUS
     Dosage: 10 MILLIGRAM
     Route: 065
     Dates: start: 201907
  17. POTASSIUM CANRENOATE [Suspect]
     Active Substance: CANRENOATE POTASSIUM
     Dosage: 50 MILLIGRAM
     Route: 065
     Dates: start: 201907
  18. BISOPROLOL [Concomitant]
     Active Substance: BISOPROLOL
     Dosage: 7.5 MILLIGRAM
     Route: 065
     Dates: start: 201907
  19. BISOPROLOL [Concomitant]
     Active Substance: BISOPROLOL
     Dosage: 5 MILLIGRAM
     Route: 065
     Dates: start: 201910
  20. FUROSEMIDE TABLETS [Suspect]
     Active Substance: FUROSEMIDE
     Dosage: 25 MILLIGRAM
     Route: 065
     Dates: start: 201910
  21. SACUBITRIL;VALSARTAN [Suspect]
     Active Substance: SACUBITRIL\VALSARTAN
     Indication: CARDIAC FAILURE
     Dosage: 1 DOSAGE FORM, TWO TIMES A DAY (PROGRESSIVELY UP TITRATED TO MAXIMUM DOSE )
     Route: 065
     Dates: start: 201905, end: 2019
  22. POTASSIUM CANRENOATE [Suspect]
     Active Substance: CANRENOATE POTASSIUM
     Dosage: 25 MILLIGRAM
     Route: 065
     Dates: start: 201909
  23. METFORMIN [Concomitant]
     Active Substance: METFORMIN HYDROCHLORIDE
     Dosage: 1500 MILLIGRAM
     Route: 065
     Dates: start: 201907
  24. FUROSEMIDE TABLETS [Suspect]
     Active Substance: FUROSEMIDE
     Dosage: 25 MILLIGRAM
     Route: 065
     Dates: start: 2019, end: 2019
  25. FUROSEMIDE TABLETS [Suspect]
     Active Substance: FUROSEMIDE
     Dosage: 25 MILLIGRAM
     Route: 065
     Dates: start: 201908
  26. POTASSIUM CANRENOATE [Suspect]
     Active Substance: CANRENOATE POTASSIUM
     Indication: PRODUCT USED FOR UNKNOWN INDICATION
     Dosage: 50 MILLIGRAM
     Route: 065
     Dates: start: 201704, end: 201908
  27. POTASSIUM CANRENOATE [Suspect]
     Active Substance: CANRENOATE POTASSIUM
     Dosage: 25 MILLIGRAM
     Route: 065
     Dates: start: 201910
  28. METFORMIN [Concomitant]
     Active Substance: METFORMIN HYDROCHLORIDE
     Dosage: 1000 MILLIGRAM
     Route: 065
     Dates: start: 202001
  29. BISOPROLOL [Concomitant]
     Active Substance: BISOPROLOL
     Indication: PRODUCT USED FOR UNKNOWN INDICATION
     Dosage: 5 MILLIGRAM
     Route: 065
     Dates: start: 201704
  30. LINAGLIPTIN [Concomitant]
     Active Substance: LINAGLIPTIN
     Dosage: 5 MILLIGRAM
     Route: 065
     Dates: start: 201910
  31. FUROSEMIDE TABLETS [Suspect]
     Active Substance: FUROSEMIDE
     Dosage: 50 MILLIGRAM
     Route: 065
     Dates: start: 201907
  32. SACUBITRIL;VALSARTAN [Suspect]
     Active Substance: SACUBITRIL\VALSARTAN
     Indication: CARDIAC FAILURE
     Dosage: 1 DOSAGE FORM, TWO TIMES A DAY
     Route: 065
     Dates: start: 2019, end: 201908
  33. METFORMIN [Concomitant]
     Active Substance: METFORMIN HYDROCHLORIDE
     Dosage: 1000 MILLIGRAM
     Route: 065
     Dates: start: 201910
  34. BISOPROLOL [Concomitant]
     Active Substance: BISOPROLOL
     Dosage: 5 MILLIGRAM
     Route: 065
     Dates: start: 201908
  35. BISOPROLOL [Concomitant]
     Active Substance: BISOPROLOL
     Dosage: 5 MILLIGRAM
     Route: 065
     Dates: start: 201909
  36. BISOPROLOL [Concomitant]
     Active Substance: BISOPROLOL
     Dosage: 5 MILLIGRAM
     Route: 065
     Dates: start: 201901

REACTIONS (7)
  - Hypovolaemia [Unknown]
  - Metabolic acidosis [Unknown]
  - Toxicity to various agents [Unknown]
  - Hyperkalaemia [Recovered/Resolved]
  - Weight decreased [Unknown]
  - Acute kidney injury [Recovering/Resolving]
  - Hypotension [Recovered/Resolved]

NARRATIVE: CASE EVENT DATE: 2019
